FAERS Safety Report 6312485-4 (Version None)
Quarter: 2009Q3

REPORT INFORMATION
  Report Type: 
  Country: None (occurrence: None)
  Receive Date: 20090813
  Receipt Date: 20090804
  Transmission Date: 20100115
  Serious: Yes (Death)
  Sender: FDA-Public Use
  Company Number: HECT-1000064

PATIENT
  Age: 81 Year
  Sex: Male

DRUGS (1)
  1. HECTOROL [Suspect]
     Indication: HYPERPARATHYROIDISM SECONDARY
     Dosage: ORAL
     Route: 048

REACTIONS (1)
  - CARDIOPULMONARY FAILURE [None]
